FAERS Safety Report 4989305-3 (Version None)
Quarter: 2006Q2

REPORT INFORMATION
  Report Type: 
  Country: None (occurrence: None)
  Receive Date: 20060426
  Receipt Date: 20060410
  Transmission Date: 20061013
  Serious: Yes (Hospitalization, Other)
  Sender: FDA-Public Use
  Company Number: US147482

PATIENT
  Age: 47 Year
  Sex: Female

DRUGS (5)
  1. ENBREL [Suspect]
     Indication: RHEUMATOID ARTHRITIS
     Dosage: SC
     Route: 058
     Dates: start: 20041015, end: 20050519
  2. PREDNISONE TAB [Concomitant]
  3. CORTICOSTEROID NOS [Concomitant]
  4. ANTIHISTAMINES [Concomitant]
  5. MONTELUKAST [Concomitant]

REACTIONS (4)
  - ANAPHYLACTIC REACTION [None]
  - ANTINUCLEAR ANTIBODY POSITIVE [None]
  - DRUG HYPERSENSITIVITY [None]
  - TYPE IV HYPERSENSITIVITY REACTION [None]
